FAERS Safety Report 9006136 (Version 2)
Quarter: 2013Q2

REPORT INFORMATION
  Report Type: Spontaneous
  Country: US (occurrence: None)
  Receive Date: 20120511
  Receipt Date: 20120808
  Transmission Date: 20140414
  Serious: Yes (Other)
  Sender: FDA-Public Use
  Company Number: TIR-01049

PATIENT
  Age: 56 Year
  Sex: Female
  Weight: 61.69 kg

DRUGS (1)
  1. TIROSINT [Suspect]
     Indication: HYPOTHYROIDISM
     Dosage: ONCE CAPSULE DAILY MONDAY THROUGH FRIDAY, TWO CAPSULES DAILY SATURDAY AND SUNDAY
     Route: 048
     Dates: start: 20111230, end: 20120330

REACTIONS (1)
  - Headache [None]
